FAERS Safety Report 15723120 (Version 1)
Quarter: 2018Q4

REPORT INFORMATION
  Report Type: Spontaneous
  Country: US (occurrence: US)
  Receive Date: 20181214
  Receipt Date: 20181214
  Transmission Date: 20190205
  Serious: Yes (Other)
  Sender: FDA-Public Use
  Company Number: US-PFIZER INC-2018511094

PATIENT
  Age: 64 Year
  Sex: Female

DRUGS (1)
  1. VENLAFAXINE HCL [Suspect]
     Active Substance: VENLAFAXINE HYDROCHLORIDE
     Dosage: UNK
     Dates: start: 2011

REACTIONS (9)
  - Blindness [Unknown]
  - Nightmare [Unknown]
  - Amnesia [Unknown]
  - Agitation [Unknown]
  - Anxiety [Unknown]
  - Tremor [Unknown]
  - Withdrawal syndrome [Unknown]
  - Disease recurrence [Unknown]
  - Depression [Unknown]
